FAERS Safety Report 4315521-X (Version None)
Quarter: 2004Q1

REPORT INFORMATION
  Report Type: 
  Country: None (occurrence: None)
  Receive Date: 20040309
  Receipt Date: 20040223
  Transmission Date: 20041129
  Serious: Yes (Other)
  Sender: FDA-Public Use
  Company Number: 203891

PATIENT
  Age: 38 Year
  Sex: Female
  Weight: 59.2 kg

DRUGS (4)
  1. HERCEPTIN [Suspect]
     Indication: BREAST CANCER METASTATIC
     Dosage: INTRAVENOUS
     Route: 042
     Dates: end: 20030701
  2. HERCEPTIN [Suspect]
     Indication: BREAST CANCER METASTATIC
     Dosage: INTRAVENOUS
     Route: 042
     Dates: start: 20030825
  3. TAXOTERE [Concomitant]
  4. LETROZOLE [Concomitant]

REACTIONS (5)
  - COMPLICATIONS OF MATERNAL EXPOSURE TO THERAPEUTIC DRUGS [None]
  - MATERNAL DRUGS AFFECTING FOETUS [None]
  - OLIGOHYDRAMNIOS [None]
  - PREGNANCY [None]
  - TRISOMY 21 [None]
